FAERS Safety Report 25801914 (Version 1)
Quarter: 2025Q3

REPORT INFORMATION
  Report Type: Spontaneous
  Country: GB (occurrence: GB)
  Receive Date: 20250915
  Receipt Date: 20250915
  Transmission Date: 20251021
  Serious: Yes (Other)
  Sender: STRIDES
  Company Number: GB-STRIDES ARCOLAB LIMITED-2025SP011597

PATIENT
  Age: 67 Year
  Sex: Male

DRUGS (5)
  1. MYCOPHENOLATE MOFETIL [Suspect]
     Active Substance: MYCOPHENOLATE MOFETIL
     Indication: Myocarditis-myositis-myasthenia gravis overlap syndrome
     Route: 065
  2. PREDNISOLONE [Suspect]
     Active Substance: PREDNISOLONE
     Indication: Myocarditis-myositis-myasthenia gravis overlap syndrome
     Route: 065
  3. NIVOLUMAB [Concomitant]
     Active Substance: NIVOLUMAB
     Indication: Malignant melanoma
     Route: 065
  4. NELVUTAMIG [Concomitant]
     Active Substance: NELVUTAMIG
     Indication: Malignant melanoma
     Route: 065
  5. METHYLPREDNISOLONE [Concomitant]
     Active Substance: METHYLPREDNISOLONE
     Indication: Myocarditis-myositis-myasthenia gravis overlap syndrome
     Route: 042

REACTIONS (2)
  - Drug-induced liver injury [Unknown]
  - Off label use [Unknown]
